FAERS Safety Report 10051397 (Version 2)
Quarter: 2014Q2

REPORT INFORMATION
  Report Type: Spontaneous
  Country: US (occurrence: US)
  Receive Date: 20140401
  Receipt Date: 20140430
  Transmission Date: 20141212
  Serious: No
  Sender: FDA-Public Use
  Company Number: US-PFIZER INC-2014090195

PATIENT
  Age: 70 Year
  Sex: Male
  Weight: 104.31 kg

DRUGS (2)
  1. PRISTIQ [Suspect]
     Indication: DEPRESSION
     Dosage: 50 MG, DAILY
     Dates: start: 2013
  2. TESTOSTERONE [Concomitant]
     Indication: KLINEFELTER^S SYNDROME
     Dosage: 200 MG, EVERY 3 WEEKS

REACTIONS (1)
  - Malaise [Unknown]
